FAERS Safety Report 12095406 (Version 2)
Quarter: 2016Q3

REPORT INFORMATION
  Report Type: Spontaneous
  Country: JP (occurrence: JP)
  Receive Date: 20160219
  Receipt Date: 20160911
  Transmission Date: 20161109
  Serious: Yes (Hospitalization, Other)
  Sender: FDA-Public Use
  Company Number: JP-ALEXION PHARMACEUTICALS INC-A201600778

PATIENT
  Age: 33 Year
  Sex: Female

DRUGS (3)
  1. SOLIRIS [Suspect]
     Active Substance: ECULIZUMAB
     Indication: PAROXYSMAL NOCTURNAL HAEMOGLOBINURIA
     Dosage: 600 MG, QW
     Route: 042
  2. SOLIRIS [Suspect]
     Active Substance: ECULIZUMAB
     Dosage: 900 MG, Q2W
     Route: 042
  3. HEPARIN CALCIUM [Concomitant]
     Active Substance: HEPARIN CALCIUM
     Indication: THROMBOSIS
     Dosage: 10000 IU, QD
     Route: 058

REACTIONS (5)
  - Premature rupture of membranes [Recovered/Resolved]
  - Haemoglobin decreased [Recovered/Resolved]
  - Exposure during pregnancy [Recovered/Resolved]
  - Umbilical cord abnormality [Recovered/Resolved]
  - Small size placenta [Recovered/Resolved]

NARRATIVE: CASE EVENT DATE: 20130629
